FAERS Safety Report 19326723 (Version 3)
Quarter: 2021Q4

REPORT INFORMATION
  Report Type: Report from Study
  Country: KR (occurrence: KR)
  Receive Date: 20210528
  Receipt Date: 20211123
  Transmission Date: 20220303
  Serious: Yes (Death, Other)
  Sender: FDA-Public Use
  Company Number: KR-KYOWAKIRIN-2021AKK008756

PATIENT
  Age: 72 Year
  Sex: Female

DRUGS (13)
  1. FILGRASTIM [Suspect]
     Active Substance: FILGRASTIM
     Indication: Product used for unknown indication
     Dosage: 300 UNK, QD
     Route: 065
     Dates: start: 20200519, end: 20200527
  2. DARATUMUMAB [Concomitant]
     Active Substance: DARATUMUMAB
     Indication: Product used for unknown indication
     Dosage: 900 MG, QD
     Route: 065
     Dates: start: 20200513, end: 20200514
  3. DARATUMUMAB [Concomitant]
     Active Substance: DARATUMUMAB
     Dosage: 900 MG, QD
     Route: 065
     Dates: start: 20200521, end: 20200521
  4. ACYCLOVIR [Concomitant]
     Active Substance: ACYCLOVIR
     Indication: Product used for unknown indication
     Dosage: 400 MG, QD
     Route: 065
     Dates: start: 20200514, end: 20200526
  5. CEFTRIAXONE [Concomitant]
     Active Substance: CEFTRIAXONE
     Indication: Product used for unknown indication
     Dosage: 2 UNK, QD
     Route: 065
     Dates: start: 20200515, end: 20200525
  6. FUROSEMIDE [Concomitant]
     Active Substance: FUROSEMIDE
     Indication: Product used for unknown indication
     Dosage: 20 MG
     Route: 065
     Dates: start: 20200513, end: 20200527
  7. LACTULOSE [Concomitant]
     Active Substance: LACTULOSE
     Indication: Product used for unknown indication
     Dosage: 15 UNK, QD
     Route: 065
     Dates: start: 20200513, end: 20200524
  8. LANSOPRAZOLE [Concomitant]
     Active Substance: LANSOPRAZOLE
     Indication: Product used for unknown indication
     Dosage: 15 MG, QD
     Route: 065
     Dates: start: 20200513, end: 20200524
  9. PAMIDRONIC ACID [Concomitant]
     Active Substance: PAMIDRONIC ACID
     Indication: Product used for unknown indication
     Dosage: 90 MG
     Route: 065
     Dates: start: 20200524, end: 20200524
  10. POTASSIUM CHLORIDE [Concomitant]
     Active Substance: POTASSIUM CHLORIDE
     Indication: Product used for unknown indication
     Dosage: 20 UNK
     Route: 065
     Dates: start: 20200523, end: 20200525
  11. POTASSIUM CHLORIDE [Concomitant]
     Active Substance: POTASSIUM CHLORIDE
     Dosage: 1 DF, QD
     Route: 065
     Dates: start: 20200513, end: 20200524
  12. AMINO ACIDS AND DERIVATIVES [Concomitant]
     Indication: Product used for unknown indication
     Dosage: UNK
     Dates: start: 20200513, end: 20200526
  13. FAT EMULSION NOS [Concomitant]
     Active Substance: EGG PHOSPHOLIPIDS\SAFFLOWER OIL\SOYBEAN OIL
     Indication: Product used for unknown indication
     Dosage: 500 UNK, BID
     Dates: start: 20200513, end: 20200526

REACTIONS (1)
  - Sepsis [Fatal]

NARRATIVE: CASE EVENT DATE: 20200524
